FAERS Safety Report 7081419-X (Version None)
Quarter: 2010Q4

REPORT INFORMATION
  Report Type: 
  Country: None (occurrence: None)
  Receive Date: 20101102
  Receipt Date: 20101102
  Transmission Date: 20110411
  Serious: No
  Sender: FDA-Public Use
  Company Number: None

PATIENT
  Age: 63 Year
  Sex: Female

DRUGS (9)
  1. SEROQUEL [Suspect]
     Indication: BIPOLAR I DISORDER
     Dosage: 200MG UNKNOWN PO
     Route: 048
  2. SIMVASTATIN [Concomitant]
  3. TRAZODONE [Concomitant]
  4. BACTRIM [Concomitant]
  5. OMEPRAZOLE DR [Concomitant]
  6. OXYBUTYNIN [Concomitant]
  7. PROPRANOLOL [Concomitant]
  8. NIFEDIPINE [Concomitant]
  9. RISPERIDONE [Concomitant]

REACTIONS (4)
  - DRUG HYPERSENSITIVITY [None]
  - DYSPNOEA [None]
  - THROAT TIGHTNESS [None]
  - TONGUE DISORDER [None]
